FAERS Safety Report 7423346-1 (Version None)
Quarter: 2011Q2

REPORT INFORMATION
  Report Type: 
  Country: None (occurrence: None)
  Receive Date: 20110419
  Receipt Date: 20110411
  Transmission Date: 20111010
  Serious: Yes (Death)
  Sender: FDA-Public Use
  Company Number: IL-GENZYME-CERZ-1002006

PATIENT
  Age: 73 Year
  Sex: Male

DRUGS (1)
  1. CEREZYME [Suspect]
     Indication: GAUCHER'S DISEASE
     Dosage: 2400 UNK, Q4W
     Route: 042
     Dates: end: 20110301

REACTIONS (1)
  - CARDIAC ARREST [None]
